FAERS Safety Report 8168135-8 (Version None)
Quarter: 2012Q1

REPORT INFORMATION
  Report Type: 
  Country: None (occurrence: None)
  Receive Date: 20120222
  Receipt Date: 20120214
  Transmission Date: 20120608
  Serious: Yes (Other)
  Sender: FDA-Public Use
  Company Number: AUR-APL-2012-00704

PATIENT
  Sex: Female

DRUGS (4)
  1. FISH OIL (FISH OIL) [Concomitant]
  2. CALCIUM CARBONATE [Concomitant]
  3. VITAMINS (KAPSOVIT) [Concomitant]
  4. LOSARTAN POTASSIOUM + HYDROCHLOROTHIAZIDE (HYDROCHLOROTHIAZIDE, LOSART [Suspect]
     Indication: HYPERTENSION
     Dosage: 1 DOSAGE FORMS, 1 D, ORAL
     Route: 048
     Dates: start: 20111101

REACTIONS (1)
  - BLOOD PRESSURE INCREASED [None]
